FAERS Safety Report 6813978-3 (Version None)
Quarter: 2010Q3

REPORT INFORMATION
  Report Type: 
  Country: None (occurrence: None)
  Receive Date: 20100702
  Receipt Date: 20100622
  Transmission Date: 20110219
  Serious: Yes (Hospitalization)
  Sender: FDA-Public Use
  Company Number: GB-JNJFOC-20090607891

PATIENT
  Age: 24 Year
  Sex: Female

DRUGS (5)
  1. RISPERIDONE [Suspect]
     Indication: PSYCHOTIC DISORDER
     Route: 065
  2. LAMOTRIGINE [Suspect]
     Indication: PSYCHOTIC DISORDER
     Dosage: ORAL, 2/1 DAY
     Route: 065
  3. LAMOTRIGINE [Suspect]
     Route: 065
  4. MIRTAZAPINE [Concomitant]
     Indication: PSYCHOTIC DISORDER
  5. MIRTAZAPINE [Concomitant]
     Indication: DEPRESSION

REACTIONS (2)
  - OVERDOSE [None]
  - PANCREATITIS ACUTE [None]
